FAERS Safety Report 23135383 (Version 1)
Quarter: 2023Q4

REPORT INFORMATION
  Report Type: Spontaneous
  Country: US (occurrence: None)
  Receive Date: 20231101
  Receipt Date: 20231101
  Transmission Date: 20240109
  Serious: Yes (Hospitalization)
  Sender: FDA-Public Use
  Company Number: None

PATIENT
  Sex: Female

DRUGS (1)
  1. SILDENAFIL CITRATE [Suspect]
     Active Substance: SILDENAFIL CITRATE
     Indication: Atrial septal defect
     Dosage: FREQUENCY : 3 TIMES A DAY;?OTHER ROUTE : VIA NG TUBE;?
     Route: 050
     Dates: start: 202306

REACTIONS (2)
  - Lacrimation increased [None]
  - Rhinovirus infection [None]
